FAERS Safety Report 8399223-9 (Version None)
Quarter: 2012Q2

REPORT INFORMATION
  Report Type: 
  Country: None (occurrence: None)
  Receive Date: 20120531
  Receipt Date: 20120522
  Transmission Date: 20120825
  Serious: Yes (Death)
  Sender: FDA-Public Use
  Company Number: US-VIIV HEALTHCARE LIMITED-A0978749A

PATIENT
  Sex: Male

DRUGS (2)
  1. SELZENTRY [Suspect]
     Indication: HIV INFECTION
     Route: 048
  2. UNKNOWN [Concomitant]

REACTIONS (2)
  - LYMPHOMA [None]
  - HAEMORRHAGE INTRACRANIAL [None]
